FAERS Safety Report 7927848-0 (Version None)
Quarter: 2011Q4

REPORT INFORMATION
  Report Type: 
  Country: None (occurrence: None)
  Receive Date: 20111118
  Receipt Date: 20111118
  Transmission Date: 20120403
  Serious: Yes (Hospitalization)
  Sender: FDA-Public Use
  Company Number: None

PATIENT
  Age: 78 Year
  Sex: Male
  Weight: 74.842 kg

DRUGS (12)
  1. TRAZODONE HCL [Concomitant]
  2. ARICEPT [Concomitant]
  3. LORTAB [Concomitant]
  4. NIASPAN [Concomitant]
  5. ATROVENT [Concomitant]
  6. LASIX [Concomitant]
  7. ALBUTEROL [Concomitant]
  8. CELEXA [Concomitant]
  9. PREDNISONE TAB [Concomitant]
  10. PRADAXA [Suspect]
     Indication: ATRIAL FIBRILLATION
     Dosage: 75MG
     Route: 048
     Dates: start: 20110517, end: 20111108
  11. NORVASC [Concomitant]
  12. ADVAIR DISKUS 100/50 [Concomitant]

REACTIONS (3)
  - ASTHENIA [None]
  - GASTROINTESTINAL HAEMORRHAGE [None]
  - MELAENA [None]
